FAERS Safety Report 16043377 (Version 3)
Quarter: 2019Q2

REPORT INFORMATION
  Report Type: Spontaneous
  Country: US (occurrence: US)
  Receive Date: 20190306
  Receipt Date: 20190524
  Transmission Date: 20190711
  Serious: Yes (Hospitalization, Other)
  Sender: FDA-Public Use
  Company Number: US-ASTRAZENECA-2019SE34525

PATIENT
  Sex: Male
  Weight: 113.4 kg

DRUGS (1)
  1. SYMBICORT [Suspect]
     Active Substance: BUDESONIDE\FORMOTEROL FUMARATE DIHYDRATE
     Indication: ASTHMA
     Dosage: 160/4.5 MCG, TWO INHALATIONS, TWICE DAILY
     Route: 055

REACTIONS (10)
  - Diverticulitis [Recovered/Resolved]
  - Device malfunction [Unknown]
  - Off label use of device [Not Recovered/Not Resolved]
  - Nosocomial infection [Unknown]
  - Product use issue [Not Recovered/Not Resolved]
  - Back disorder [Recovered/Resolved]
  - Medication error [Not Recovered/Not Resolved]
  - Rotator cuff syndrome [Not Recovered/Not Resolved]
  - Cataract [Not Recovered/Not Resolved]
  - Product packaging quantity issue [Unknown]
